FAERS Safety Report 14158557 (Version 4)
Quarter: 2018Q2

REPORT INFORMATION
  Report Type: Spontaneous
  Country: JP (occurrence: JP)
  Receive Date: 20171106
  Receipt Date: 20180413
  Transmission Date: 20180711
  Serious: Yes (Other)
  Sender: FDA-Public Use
  Company Number: JP-CONCORDIA PHARMACEUTICALS INC.-GSH201711-006239

PATIENT
  Age: 0 Year
  Sex: Male
  Weight: 3.14 kg

DRUGS (1)
  1. PLAQUENIL [Suspect]
     Active Substance: HYDROXYCHLOROQUINE SULFATE
     Indication: PRODUCT USED FOR UNKNOWN INDICATION
     Route: 064
     Dates: start: 20161206, end: 20170524

REACTIONS (2)
  - Foetal exposure during pregnancy [Unknown]
  - Neonatal lupus erythematosus [Unknown]

NARRATIVE: CASE EVENT DATE: 20161206
